FAERS Safety Report 12059313 (Version 1)
Quarter: 2016Q1

REPORT INFORMATION
  Report Type: Spontaneous
  Country: US (occurrence: None)
  Receive Date: 20160209
  Receipt Date: 20160209
  Transmission Date: 20160526
  Serious: Yes (Life-Threatening, Hospitalization, Disabling)
  Sender: FDA-Public Use
  Company Number: None

PATIENT
  Age: 66 Year
  Sex: Male
  Weight: 143.34 kg

DRUGS (21)
  1. TOUJEO [Suspect]
     Active Substance: INSULIN GLARGINE
     Indication: TYPE 2 DIABETES MELLITUS
     Route: 058
     Dates: start: 20151026, end: 20160112
  2. DOXYCYCLINE HYCLATE. [Concomitant]
     Active Substance: DOXYCYCLINE HYCLATE
  3. METFORMIN [Concomitant]
     Active Substance: METFORMIN HYDROCHLORIDE
  4. ASPIRIN. [Concomitant]
     Active Substance: ASPIRIN
  5. GYMNEMA SYLVESTRE [Concomitant]
  6. ZESTRIL [Concomitant]
     Active Substance: LISINOPRIL
  7. AMIODARONE [Concomitant]
     Active Substance: AMIODARONE
  8. PRINIVAL [Concomitant]
  9. KRILL OIL [Concomitant]
     Active Substance: DIETARY SUPPLEMENT
  10. LISINOPRIL. [Concomitant]
     Active Substance: LISINOPRIL
  11. WARFARIN [Concomitant]
     Active Substance: WARFARIN
  12. GINKGO BILOBA [Concomitant]
     Active Substance: GINKGO
  13. FUROSEMIDE. [Concomitant]
     Active Substance: FUROSEMIDE
  14. LIPITOR [Concomitant]
     Active Substance: ATORVASTATIN CALCIUM
  15. CHROMIUM PICOLINATE [Concomitant]
     Active Substance: CHROMIUM PICOLINATE
  16. CARVEDILOL. [Concomitant]
     Active Substance: CARVEDILOL
  17. VICTOZA [Concomitant]
     Active Substance: LIRAGLUTIDE
  18. NOVOLOG SLIDING SCALE [Concomitant]
  19. SINGULAIR [Concomitant]
     Active Substance: MONTELUKAST SODIUM
  20. MULTI-VITAMIN [Concomitant]
     Active Substance: .ALPHA.-TOCOPHEROL ACETATE, DL-\ASCORBIC ACID\CYANOCOBALAMIN\FLUORIDE ION\FOLIC ACID\NIACIN\PYRIDOXINE\RIBOFLAVIN\THIAMINE\VITAMIN A\VITAMIN D
  21. CINNAMON. [Concomitant]
     Active Substance: CINNAMON

REACTIONS (4)
  - Cardiac failure congestive [None]
  - General physical health deterioration [None]
  - Pneumonia [None]
  - Atrial fibrillation [None]

NARRATIVE: CASE EVENT DATE: 20160201
